FAERS Safety Report 25994010 (Version 2)
Quarter: 2025Q4

REPORT INFORMATION
  Report Type: Report from Study
  Country: CA (occurrence: CA)
  Receive Date: 20251104
  Receipt Date: 20251111
  Transmission Date: 20260118
  Serious: Yes (Other)
  Sender: JOHNSON AND JOHNSON
  Company Number: CA-JNJFOC-20250732638

PATIENT
  Age: 16 Year
  Sex: Female

DRUGS (4)
  1. REMICADE [Suspect]
     Active Substance: INFLIXIMAB
     Indication: Crohn^s disease
     Dosage: BSA IS 1.34X200 = 268 ROUNDED UP TO 300MG
     Route: 041
     Dates: start: 20250724
  2. REMICADE [Suspect]
     Active Substance: INFLIXIMAB
     Route: 041
  3. REMICADE [Suspect]
     Active Substance: INFLIXIMAB
     Dosage: BSA IS 1.34X200 = 268 ROUNDED UP TO 300MG
     Route: 041
  4. REMICADE [Suspect]
     Active Substance: INFLIXIMAB
     Dosage: BSA IS 1.34X200 = 268 ROUNDED UP TO 300MG
     Route: 041

REACTIONS (4)
  - Crohn^s disease [Unknown]
  - Fistula discharge [Unknown]
  - Off label use [Unknown]
  - Poor venous access [Unknown]
